FAERS Safety Report 4921246-X (Version None)
Quarter: 2006Q1

REPORT INFORMATION
  Report Type: 
  Country: None (occurrence: None)
  Receive Date: 20060222
  Receipt Date: 20060222
  Transmission Date: 20060701
  Serious: Yes (Hospitalization, Disabling)
  Sender: FDA-Public Use
  Company Number: None

PATIENT
  Sex: Male

DRUGS (13)
  1. SIMVASTATIN [Suspect]
     Indication: HYPERLIPIDAEMIA
     Dosage: 40 MG  HS   PO
     Route: 048
  2. CALCIUM GLUCONATE [Concomitant]
  3. FOLATE [Concomitant]
  4. COMBIVENT [Concomitant]
  5. CYCLOBENZAPRINE HCL [Concomitant]
  6. ALENDRONATE SODIUM [Concomitant]
  7. FISH OIL [Concomitant]
  8. OMEPRAZOLE [Concomitant]
  9. DOCUSATE [Concomitant]
  10. PSYLLIUM [Concomitant]
  11. LISINOPRIL [Concomitant]
  12. TRAMADOL HCL [Concomitant]
  13. MORPHINE [Concomitant]

REACTIONS (1)
  - MYALGIA [None]
